FAERS Safety Report 8299908-9 (Version None)
Quarter: 2012Q2

REPORT INFORMATION
  Report Type: 
  Country: None (occurrence: None)
  Receive Date: 20120420
  Receipt Date: 20120418
  Transmission Date: 20120825
  Serious: Yes (Other)
  Sender: FDA-Public Use
  Company Number: US-B.I. PHARMACEUTICALS,INC./RIDGEFIELD-2011-BP-13101BP

PATIENT
  Sex: Male

DRUGS (7)
  1. LOSARTAN POTASSIUM [Concomitant]
     Indication: ATRIAL FIBRILLATION
     Dosage: 25 MG
     Route: 048
     Dates: start: 20110301
  2. ASPIRIN [Concomitant]
     Indication: ATRIAL FIBRILLATION
     Dosage: 325 MG
     Route: 048
     Dates: start: 20110511
  3. PRADAXA [Suspect]
     Indication: ATRIAL FIBRILLATION
     Dosage: 300 MG
     Route: 048
     Dates: start: 20110318, end: 20110510
  4. TYLENOL (CAPLET) [Concomitant]
     Route: 048
  5. METOPROLOL TARTRATE [Suspect]
  6. PRADAXA [Suspect]
     Dosage: 300 MG
     Route: 048
     Dates: start: 20111006
  7. CARDIZEM [Suspect]

REACTIONS (4)
  - DIARRHOEA [None]
  - BASAL CELL CARCINOMA [None]
  - FEELING ABNORMAL [None]
  - HEADACHE [None]
